FAERS Safety Report 6242926-2 (Version None)
Quarter: 2009Q2

REPORT INFORMATION
  Report Type: 
  Country: None (occurrence: None)
  Receive Date: 20090624
  Receipt Date: 20090618
  Transmission Date: 20091009
  Serious: Yes (Hospitalization, Other)
  Sender: FDA-Public Use
  Company Number: US-ASTRAZENECA-2007UW06358

PATIENT
  Age: 714 Month
  Sex: Male
  Weight: 81.6 kg

DRUGS (2)
  1. SEROQUEL [Suspect]
     Indication: POST-TRAUMATIC STRESS DISORDER
     Dosage: 25MG - 75MG
     Route: 048
     Dates: start: 20040414, end: 20060601
  2. LITHOBID [Concomitant]
     Dosage: 600 MG-900 MG
     Dates: start: 19981101, end: 20030201

REACTIONS (13)
  - ABDOMINAL PAIN UPPER [None]
  - BACK DISORDER [None]
  - BENIGN PROSTATIC HYPERPLASIA [None]
  - BLINDNESS [None]
  - BLOOD CHOLESTEROL INCREASED [None]
  - COUGH [None]
  - DEAFNESS [None]
  - DIVERTICULITIS [None]
  - DYSPNOEA [None]
  - PANCREATITIS [None]
  - PERIPHERAL VASCULAR DISORDER [None]
  - TYPE 2 DIABETES MELLITUS [None]
  - VERTIGO [None]
